FAERS Safety Report 5781827-0 (Version None)
Quarter: 2008Q2

REPORT INFORMATION
  Report Type: 
  Country: None (occurrence: None)
  Receive Date: 20080623
  Receipt Date: 20080617
  Transmission Date: 20081010
  Serious: Yes (Hospitalization)
  Sender: FDA-Public Use
  Company Number: US-AVENTIS-200813796US

PATIENT

DRUGS (2)
  1. LOVENOX [Suspect]
     Dosage: DOSE: UNK
  2. COUMADIN [Suspect]
     Dosage: DOSE: UNK

REACTIONS (1)
  - VISION BLURRED [None]
